FAERS Safety Report 5648490-0 (Version None)
Quarter: 2008Q1

REPORT INFORMATION
  Report Type: 
  Country: None (occurrence: None)
  Receive Date: 20080304
  Receipt Date: 20080225
  Transmission Date: 20080703
  Serious: Yes (Other)
  Sender: FDA-Public Use
  Company Number: PHHY2008AR02121

PATIENT
  Age: 79 Year
  Sex: Female

DRUGS (4)
  1. ACLASTA [Suspect]
     Indication: OSTEOPOROSIS
     Dosage: 1 AMP ANNUAL
     Dates: start: 20070319
  2. CALCIUM SANDOZ (NCH) [Suspect]
  3. EMOTIVAL [Concomitant]
  4. GASTEC [Concomitant]

REACTIONS (5)
  - DISCOMFORT [None]
  - FALL [None]
  - HEADACHE [None]
  - HYPOCALCAEMIA [None]
  - SKELETAL INJURY [None]
